FAERS Safety Report 9819988 (Version 5)
Quarter: 2014Q1

REPORT INFORMATION
  Report Type: Spontaneous
  Country: US (occurrence: US)
  Receive Date: 20140116
  Receipt Date: 20140320
  Transmission Date: 20141002
  Serious: Yes (Hospitalization)
  Sender: FDA-Public Use
  Company Number: US-JNJFOC-20140104822

PATIENT
  Age: 65 Year
  Sex: Female
  Weight: 50.35 kg

DRUGS (10)
  1. XARELTO [Suspect]
     Indication: CEREBROVASCULAR ACCIDENT PROPHYLAXIS
     Route: 048
     Dates: start: 20131213, end: 20140108
  2. XARELTO [Suspect]
     Indication: ATRIAL FIBRILLATION
     Route: 048
     Dates: start: 20131213, end: 20140108
  3. ASPIRIN [Suspect]
     Indication: PRODUCT USED FOR UNKNOWN INDICATION
     Route: 048
  4. MULTIVITAMINS [Concomitant]
     Dosage: ONE POST ORAL DAILY
     Route: 048
  5. VITAMIN C [Concomitant]
     Route: 048
  6. VITAMIN B12 [Concomitant]
     Route: 048
  7. GLUCOSAMINE W/CHONDROITIN SULF./MANGAN./VIT C [Concomitant]
     Route: 048
  8. CARDIZEM [Concomitant]
     Route: 065
  9. AMIODARONE HCL [Concomitant]
     Route: 048
  10. CALCIUM CARBONATE AND VITAMIN D [Concomitant]
     Dosage: 500-12MG UNIT
     Route: 048

REACTIONS (2)
  - Gastrointestinal haemorrhage [Recovered/Resolved]
  - Haemoglobin decreased [Recovered/Resolved]
